FAERS Safety Report 24753452 (Version 1)
Quarter: 2024Q4

REPORT INFORMATION
  Report Type: Spontaneous
  Country: US (occurrence: US)
  Receive Date: 20241219
  Receipt Date: 20241219
  Transmission Date: 20250114
  Serious: No
  Sender: MUNDIPHARMA EDO
  Company Number: US-Mundipharma Research Limited-2167427

PATIENT

DRUGS (2)
  1. REZZAYO [Suspect]
     Active Substance: REZAFUNGIN
     Indication: Fungal infection
  2. REZZAYO [Suspect]
     Active Substance: REZAFUNGIN
     Indication: Osteomyelitis

REACTIONS (1)
  - Off label use [Unknown]
